FAERS Safety Report 7938748-4 (Version None)
Quarter: 2011Q4

REPORT INFORMATION
  Report Type: 
  Country: None (occurrence: None)
  Receive Date: 20111124
  Receipt Date: 20111121
  Transmission Date: 20120403
  Serious: No
  Sender: FDA-Public Use
  Company Number: US-BIOGENIDEC-2011BI037958

PATIENT
  Age: 31 Year
  Sex: Female

DRUGS (2)
  1. TYSABRI [Suspect]
     Indication: MULTIPLE SCLEROSIS
     Route: 042
     Dates: start: 20100715, end: 20111003
  2. TYSABRI [Suspect]
     Route: 042
     Dates: start: 20111101

REACTIONS (4)
  - DYSPNOEA [None]
  - CHEST PAIN [None]
  - ADVERSE REACTION [None]
  - CHEST DISCOMFORT [None]
